FAERS Safety Report 9249003 (Version 1)
Quarter: 2013Q1

REPORT INFORMATION
  Report Type: Spontaneous
  Country: US (occurrence: None)
  Receive Date: 20130305
  Receipt Date: 20130305
  Transmission Date: 20140127
  Serious: Yes (Other)
  Sender: FDA-Public Use
  Company Number: 163-21880-12091045

PATIENT
  Age: 72 Year
  Sex: Female
  Weight: 80.74 kg

DRUGS (7)
  1. REVLIMID [Suspect]
     Indication: MYELOFIBROSIS
     Dates: start: 201006
  2. ALEVE (NAPROXEN SODIUM) [Concomitant]
  3. HYDROCODONE (HYDROCODONE) [Concomitant]
  4. BALSALAZIDE (BALSALAZIDE) [Concomitant]
  5. ASA (ACETYLSALICYLIC ACID) [Concomitant]
  6. COMPAZINE (PROCHLORPERAZINE EDISYLATE) [Concomitant]
  7. ZOFRAN (ONDANSETRON HYDROCHLORIDE) [Concomitant]

REACTIONS (1)
  - White blood cell count increased [None]
